FAERS Safety Report 21134129 (Version 1)
Quarter: 2022Q3

REPORT INFORMATION
  Report Type: Spontaneous
  Country: US (occurrence: US)
  Receive Date: 20220726
  Receipt Date: 20220726
  Transmission Date: 20221026
  Serious: Yes (Other)
  Sender: FDA-Public Use
  Company Number: US-SUNOVION-2022SUN002193

PATIENT
  Sex: Female
  Weight: 68.027 kg

DRUGS (13)
  1. LATUDA [Suspect]
     Active Substance: LURASIDONE HYDROCHLORIDE
     Indication: Bipolar disorder
     Dosage: 40 MG, QD AT NIGHT FOR BIPOLAR
     Route: 048
  2. ALPRAZOLAM [Concomitant]
     Active Substance: ALPRAZOLAM
     Dosage: TAKE 1/2 TO 1 TAB BY MOUTH EVERY 6 HRS
     Route: 048
  3. Amoxicilin rnp [Concomitant]
     Dosage: 2 CAPS TWICE DAILY UNTIL GONE
     Route: 048
  4. BENZTROPINE MESYLATE [Concomitant]
     Active Substance: BENZTROPINE MESYLATE
  5. BUPROPION HYDROCHLORIDE XL [Concomitant]
     Active Substance: BUPROPION HYDROCHLORIDE
  6. GUANFACINE HYDROCHLORIDE [Concomitant]
     Active Substance: GUANFACINE HYDROCHLORIDE
  7. VITAMIN D3 [Concomitant]
     Active Substance: CHOLECALCIFEROL
  8. VITAMIN C [Concomitant]
     Active Substance: ASCORBIC ACID
  9. HYDROXYZINE HYDROCHLORIDE [Concomitant]
     Active Substance: HYDROXYZINE HYDROCHLORIDE
     Indication: Bipolar disorder
  10. LITHIUM CARBONATE [Concomitant]
     Active Substance: LITHIUM CARBONATE
  11. MELATONIN [Concomitant]
     Active Substance: MELATONIN
  12. NITROFURANTOIN MONOHYDRATE MACROCRYSTALS [Concomitant]
     Active Substance: NITROFURANTOIN\NITROFURANTOIN MONOHYDRATE
  13. CANNABIS SATIVA SUBSP. INDICA TOP [Concomitant]
     Active Substance: CANNABIS SATIVA SUBSP. INDICA TOP

REACTIONS (5)
  - Suicidal ideation [Not Recovered/Not Resolved]
  - Emotional disorder [Not Recovered/Not Resolved]
  - Drug ineffective [Not Recovered/Not Resolved]
  - Mania [Not Recovered/Not Resolved]
  - Depression [Not Recovered/Not Resolved]
